FAERS Safety Report 5419037-9 (Version None)
Quarter: 2007Q3

REPORT INFORMATION
  Report Type: 
  Country: None (occurrence: None)
  Receive Date: 20070820
  Receipt Date: 20070809
  Transmission Date: 20080115
  Serious: Yes (Hospitalization)
  Sender: FDA-Public Use
  Company Number: PHBS2007FI13160

PATIENT
  Sex: Female

DRUGS (10)
  1. LEPONEX [Suspect]
     Indication: SCHIZOPHRENIA
     Dosage: 50 MG, D
     Route: 048
     Dates: start: 20070801
  2. LEPONEX [Suspect]
     Dosage: 25 MG, BID
     Route: 048
  3. LEPONEX [Suspect]
     Route: 048
     Dates: start: 19980101
  4. LEPONEX [Suspect]
     Dosage: UNK, UNK
     Route: 048
     Dates: start: 20070702
  5. LEPONEX [Suspect]
     Dosage: 25 MG,D
     Route: 048
     Dates: start: 20070801
  6. KLORPROMAN [Concomitant]
     Indication: SCHIZOPHRENIA
     Dosage: 100MG AND 300 MG/D
  7. DIAPINE [Concomitant]
     Dosage: 15 MG, D
  8. VITAMIN CAP [Concomitant]
     Dosage: 1 DF, UNK
  9. ZINACEF [Suspect]
  10. AVELOX [Suspect]

REACTIONS (15)
  - ANAEMIA [None]
  - BACTERIA URINE [None]
  - BLOOD IRON DECREASED [None]
  - C-REACTIVE PROTEIN INCREASED [None]
  - DIARRHOEA [None]
  - DRUG INTERACTION [None]
  - HAEMOGLOBIN DECREASED [None]
  - INFECTION [None]
  - MYALGIA [None]
  - POLLAKIURIA [None]
  - RED BLOOD CELL SEDIMENTATION RATE INCREASED [None]
  - SOMNOLENCE [None]
  - TACHYCARDIA [None]
  - TOOTH INFECTION [None]
  - WHITE BLOOD CELL COUNT INCREASED [None]
